FAERS Safety Report 9920805 (Version 1)
Quarter: 2014Q1

REPORT INFORMATION
  Report Type: Spontaneous
  Country: FR (occurrence: FR)
  Receive Date: 20140224
  Receipt Date: 20140224
  Transmission Date: 20141002
  Serious: Yes (Hospitalization)
  Sender: FDA-Public Use
  Company Number: FR-PFIZER INC-2014048681

PATIENT
  Age: 26 Year
  Sex: Female

DRUGS (4)
  1. LYRICA [Suspect]
     Dosage: 150 MG, 2X/DAY
     Route: 048
     Dates: start: 201310, end: 20140109
  2. LAROXYL [Concomitant]
     Dosage: 35 GTT, 1X/DAY
     Route: 048
     Dates: start: 201310
  3. PIRILENE [Concomitant]
     Indication: PULMONARY TUBERCULOSIS
     Dosage: UNK
  4. PASER [Concomitant]
     Indication: PULMONARY TUBERCULOSIS
     Dosage: UNK

REACTIONS (1)
  - Electrocardiogram QT prolonged [Recovered/Resolved]
